FAERS Safety Report 9493601 (Version 6)
Quarter: 2013Q4

REPORT INFORMATION
  Report Type: Report from Study
  Country: FR (occurrence: FR)
  Receive Date: 20130902
  Receipt Date: 20131111
  Transmission Date: 20140711
  Serious: Yes (Death, Life-Threatening, Other)
  Sender: FDA-Public Use
  Company Number: FR-MPIJNJ-2013JNJ000109

PATIENT
  Sex: 0

DRUGS (11)
  1. VELCADE [Suspect]
     Indication: ACUTE LYMPHOCYTIC LEUKAEMIA
     Dosage: 1.3 MG/M2, UNK
     Route: 042
     Dates: start: 20130813, end: 20130820
  2. VINCRISTINE [Suspect]
     Indication: ACUTE LYMPHOCYTIC LEUKAEMIA
     Dosage: 1.5 MG, UNK
     Route: 042
     Dates: start: 20130820, end: 20130820
  3. METHOTREXATE [Suspect]
     Indication: ACUTE LYMPHOCYTIC LEUKAEMIA
     Dosage: 8 MG, UNK
     Route: 037
     Dates: start: 20130813, end: 20130813
  4. DEXAMETHASONE [Suspect]
     Indication: ACUTE LYMPHOCYTIC LEUKAEMIA
     Dosage: 10 MG/M2, UNK
     Route: 048
     Dates: start: 20130813, end: 20130823
  5. CIPROFLOXACINE [Concomitant]
     Indication: PSEUDOMONAL SEPSIS
     Dosage: 800 MG, UNK
     Route: 042
     Dates: start: 20130813
  6. CEFTAZIDIME [Concomitant]
     Indication: PSEUDOMONAL SEPSIS
     Dosage: UNK
     Dates: start: 20130813
  7. IMIPENEM [Concomitant]
     Indication: PSEUDOMONAL SEPSIS
     Dosage: UNK
     Dates: start: 20130808, end: 20130813
  8. AMIKACINE                          /00391001/ [Concomitant]
     Indication: PSEUDOMONAL SEPSIS
     Dosage: UNK
     Dates: start: 20130813, end: 20130813
  9. CARDENSIEL [Concomitant]
     Indication: LEFT VENTRICULAR DYSFUNCTION
  10. LOPRIL                             /00498401/ [Concomitant]
     Indication: LEFT VENTRICULAR DYSFUNCTION
  11. LASILIX                            /00032601/ [Concomitant]
     Indication: LEFT VENTRICULAR DYSFUNCTION

REACTIONS (2)
  - Multi-organ failure [Fatal]
  - Convulsion [Recovered/Resolved]
